FAERS Safety Report 5908342-5 (Version None)
Quarter: 2008Q4

REPORT INFORMATION
  Report Type: 
  Country: None (occurrence: None)
  Receive Date: 20081006
  Receipt Date: 20080926
  Transmission Date: 20090506
  Serious: Yes (Hospitalization)
  Sender: FDA-Public Use
  Company Number: PHHO2008FR11306

PATIENT
  Sex: Male

DRUGS (6)
  1. ERL 080A ERL+TAB [Suspect]
     Indication: RENAL TRANSPLANT
     Dosage: UNK
     Route: 048
     Dates: start: 20071219
  2. ERL 080A ERL+TAB [Suspect]
     Dosage: 360 MG X 2
     Route: 048
     Dates: start: 20080424, end: 20080428
  3. ERL 080A ERL+TAB [Suspect]
     Dosage: 360 MG
     Route: 048
     Dates: start: 20080507
  4. CORTICOSTEROIDS [Concomitant]
     Indication: RENAL TRANSPLANT
  5. BACTRIM [Concomitant]
  6. ROVALCYTE [Concomitant]

REACTIONS (3)
  - AGRANULOCYTOSIS [None]
  - LEUKOPENIA [None]
  - PYREXIA [None]
